FAERS Safety Report 6868943-7 (Version None)
Quarter: 2010Q3

REPORT INFORMATION
  Report Type: 
  Country: None (occurrence: None)
  Receive Date: 20100722
  Receipt Date: 20100709
  Transmission Date: 20110219
  Serious: No
  Sender: FDA-Public Use
  Company Number: US-B.I. PHARMACEUTICALS,INC./RIDGEFIELD-2010-BP-07846BP

PATIENT
  Age: 67 Year
  Sex: Male

DRUGS (1)
  1. FLOMAX [Suspect]
     Dates: start: 20090101, end: 20100101

REACTIONS (4)
  - ABNORMAL DREAMS [None]
  - DELIRIUM [None]
  - FEELING ABNORMAL [None]
  - NOCTURIA [None]
